FAERS Safety Report 16952447 (Version 1)
Quarter: 2019Q4

REPORT INFORMATION
  Report Type: Spontaneous
  Country: US (occurrence: US)
  Receive Date: 20191022
  Receipt Date: 20191022
  Transmission Date: 20200122
  Serious: Yes (Other)
  Sender: FDA-Public Use
  Company Number: None

PATIENT
  Age: 68 Year
  Sex: Female
  Weight: 54 kg

DRUGS (1)
  1. IBRANCE [Suspect]
     Active Substance: PALBOCICLIB
     Dosage: ?          OTHER FREQUENCY:DAILY X 3 WEEKS;?
     Route: 048
     Dates: start: 20190516, end: 20191022

REACTIONS (1)
  - Disease progression [None]

NARRATIVE: CASE EVENT DATE: 20191022
